FAERS Safety Report 22585155 (Version 1)
Quarter: 2023Q2

REPORT INFORMATION
  Report Type: Spontaneous
  Country: US (occurrence: US)
  Receive Date: 20230609
  Receipt Date: 20230609
  Transmission Date: 20230722
  Serious: Yes (Other)
  Sender: FDA-Public Use
  Company Number: US-MIRATI-MT2023PM04155

PATIENT

DRUGS (4)
  1. KRAZATI [Suspect]
     Active Substance: ADAGRASIB
     Indication: Lung neoplasm malignant
     Dosage: 1 PILL TWICE A DAY
     Route: 048
     Dates: start: 20230525
  2. KRAZATI [Suspect]
     Active Substance: ADAGRASIB
     Indication: Small cell lung cancer metastatic
     Dosage: 600 MG, BID
     Route: 048
     Dates: start: 20230526
  3. SYNTHROID [Concomitant]
     Active Substance: LEVOTHYROXINE SODIUM
  4. INSULIN NOS [Concomitant]
     Active Substance: INSULIN NOS
     Indication: Diabetes mellitus

REACTIONS (3)
  - Electrocardiogram QT prolonged [Unknown]
  - Rash [Recovering/Resolving]
  - Rash [Not Recovered/Not Resolved]

NARRATIVE: CASE EVENT DATE: 20230602
